FAERS Safety Report 7343321-5 (Version None)
Quarter: 2011Q1

REPORT INFORMATION
  Report Type: 
  Country: None (occurrence: None)
  Receive Date: 20110308
  Receipt Date: 20110308
  Transmission Date: 20110831
  Serious: Yes (Other)
  Sender: FDA-Public Use
  Company Number: None

PATIENT
  Age: 47 Year
  Sex: Female
  Weight: 77.1115 kg

DRUGS (3)
  1. VENLAFAXINE HCL EXTENDED-RELEASE [Suspect]
     Indication: DEPRESSION
     Dosage: 150MG 1XDAY PO
     Dates: start: 20100901, end: 20110301
  2. VENLAFAXINE HCL EXTENDED-RELEASE [Suspect]
     Indication: ANXIETY DISORDER
     Dosage: 150MG 1XDAY PO
     Dates: start: 20100901, end: 20110301
  3. VENLAFAXINE HCL EXTENDED-RELEASE [Suspect]
     Indication: ANXIETY
     Dosage: 150MG 1XDAY PO
     Dates: start: 20100901, end: 20110301

REACTIONS (10)
  - BLEPHAROSPASM [None]
  - VISION BLURRED [None]
  - DEPRESSION [None]
  - INSOMNIA [None]
  - MUSCLE TWITCHING [None]
  - NO THERAPEUTIC RESPONSE [None]
  - ANXIETY [None]
  - MUSCLE SPASMS [None]
  - DIZZINESS [None]
  - VISUAL IMPAIRMENT [None]
